FAERS Safety Report 4469198-3 (Version None)
Quarter: 2004Q4

REPORT INFORMATION
  Report Type: 
  Country: None (occurrence: None)
  Receive Date: 20041005
  Receipt Date: 20040924
  Transmission Date: 20050328
  Serious: Yes (Other)
  Sender: FDA-Public Use
  Company Number: 2004070135

PATIENT
  Age: 76 Year
  Sex: Male
  Weight: 84.369 kg

DRUGS (3)
  1. LIPITOR [Suspect]
     Indication: BLOOD CHOLESTEROL INCREASED
     Dosage: 10 MG (10 MG, 1 IN 1 D), ORAL
     Route: 048
     Dates: end: 20040601
  2. PAROXETINE HCL [Concomitant]
  3. WARFARIN (WARFARIN) [Concomitant]

REACTIONS (2)
  - LUNG NEOPLASM MALIGNANT [None]
  - NEUROPATHY PERIPHERAL [None]
